FAERS Safety Report 12450327 (Version 2)
Quarter: 2016Q3

REPORT INFORMATION
  Report Type: Spontaneous
  Country: US (occurrence: US)
  Receive Date: 20160609
  Receipt Date: 20160725
  Transmission Date: 20161109
  Serious: No
  Sender: FDA-Public Use
  Company Number: US-PFIZER INC-2016268361

PATIENT
  Age: 50 Year
  Sex: Female
  Weight: 39 kg

DRUGS (1)
  1. PREMARIN [Suspect]
     Active Substance: ESTROGENS, CONJUGATED
     Indication: BONE DISORDER
     Dosage: 0.09 (UNIT OF THE DOSE WAS NOT AVAILABLE)

REACTIONS (1)
  - Drug ineffective for unapproved indication [Unknown]
